FAERS Safety Report 6541417-9 (Version None)
Quarter: 2010Q1

REPORT INFORMATION
  Report Type: 
  Country: None (occurrence: None)
  Receive Date: 20100118
  Receipt Date: 20100108
  Transmission Date: 20100710
  Serious: Yes (Other)
  Sender: FDA-Public Use
  Company Number: CA-ABBOTT-10P-028-0618280-00

PATIENT
  Sex: Male
  Weight: 59.02 kg

DRUGS (2)
  1. HUMIRA [Suspect]
     Indication: CROHN'S DISEASE
     Route: 058
     Dates: start: 20090522, end: 20091219
  2. IMURAN [Concomitant]
     Indication: DRUG USE FOR UNKNOWN INDICATION
     Dosage: 2 AND A HALF TABLET PER DAY

REACTIONS (3)
  - DRUG INEFFECTIVE [None]
  - FISTULA [None]
  - SMALL INTESTINAL RESECTION [None]
